FAERS Safety Report 8132579-0 (Version None)
Quarter: 2012Q1

REPORT INFORMATION
  Report Type: 
  Country: None (occurrence: None)
  Receive Date: 20120213
  Receipt Date: 20120206
  Transmission Date: 20120608
  Serious: Yes (Other)
  Sender: FDA-Public Use
  Company Number: US-BAYER-2011-084551

PATIENT
  Age: 37 Year
  Sex: Female
  Weight: 81.633 kg

DRUGS (19)
  1. EXCEDRIN (MIGRAINE) [Concomitant]
     Indication: HEADACHE
     Dosage: MONTHLY
     Route: 048
  2. CIPROFLOXACIN [Concomitant]
     Dosage: 500 MG, UNK
     Route: 048
  3. LOESTRIN 1.5/30 [Concomitant]
     Dosage: UNK
     Dates: start: 20090504
  4. NYSTATIN [Concomitant]
     Dosage: UNK
     Dates: start: 20090513
  5. YAZ [Suspect]
     Dosage: UNK
     Dates: start: 20071001
  6. YASMIN [Suspect]
     Dosage: UNK
     Dates: start: 20071001
  7. ALBUTEROL [Concomitant]
     Indication: ASTHMA
     Dosage: UNK
     Route: 055
     Dates: start: 20020101
  8. PRILOSEC [Concomitant]
     Indication: DYSPEPSIA
     Dosage: UNK
     Dates: start: 20070101
  9. NEXIUM [Concomitant]
     Indication: GASTROOESOPHAGEAL REFLUX DISEASE
     Dosage: 40 MG, UNK
     Dates: start: 20090513
  10. PROGESTERONE [Concomitant]
     Dosage: 20 MG, BID
  11. FLONASE [Concomitant]
     Indication: MULTIPLE ALLERGIES
     Dosage: 50 MCG
     Route: 045
     Dates: start: 20020101
  12. AVELOX [Concomitant]
     Dosage: 400 MG, UNK
     Route: 048
  13. ASCORBIC ACID [Concomitant]
     Dosage: UNK UNK, QD
     Route: 048
     Dates: start: 20020101
  14. HYOMAX +#8211; SL [Concomitant]
     Indication: ABDOMINAL PAIN
     Dosage: 0.125 MG, UNK
     Dates: start: 20070101
  15. CIPROFLOXACIN HCL [Concomitant]
     Dosage: 0.3 %, UNK
     Route: 021
  16. MULTI-VITAMIN [Concomitant]
     Dosage: UNK UNK, QD
     Route: 048
     Dates: start: 20020101
  17. CALCIUM [Concomitant]
     Dosage: UNK UNK, QD
     Route: 048
     Dates: start: 20020101
  18. CLARITIN [Concomitant]
     Indication: MULTIPLE ALLERGIES
     Dosage: UNK UNK, QD
     Route: 048
     Dates: start: 20020101
  19. AMOXIL [Concomitant]
     Dosage: UNK
     Dates: start: 20090513

REACTIONS (7)
  - ABDOMINAL PAIN [None]
  - GALLBLADDER DISORDER [None]
  - BILIARY DYSKINESIA [None]
  - CHOLELITHIASIS [None]
  - FEAR [None]
  - STRESS [None]
  - GALLBLADDER PAIN [None]
